FAERS Safety Report 6699737-3 (Version None)
Quarter: 2010Q2

REPORT INFORMATION
  Report Type: 
  Country: None (occurrence: None)
  Receive Date: 20100428
  Receipt Date: 20100426
  Transmission Date: 20101027
  Serious: Yes (Death, Other)
  Sender: FDA-Public Use
  Company Number: US-ASTRAZENECA-2007UW09658

PATIENT
  Age: 24113 Day
  Sex: Male
  Weight: 113.9 kg

DRUGS (25)
  1. SEROQUEL [Suspect]
     Indication: SCHIZOPHRENIA
     Dosage: 300 MG AM/600 MG, 900 MG
     Route: 048
     Dates: start: 19991001, end: 20060101
  2. SEROQUEL [Suspect]
     Indication: BIPOLAR DISORDER
     Dosage: 300 MG AM/600 MG, 900 MG
     Route: 048
     Dates: start: 19991001, end: 20060101
  3. SEROQUEL [Suspect]
     Dosage: 25 MG - 400 MG
     Route: 048
     Dates: start: 20010228, end: 20030101
  4. SEROQUEL [Suspect]
     Dosage: 25 MG - 400 MG
     Route: 048
     Dates: start: 20010228, end: 20030101
  5. RISPERDAL [Suspect]
     Indication: BIPOLAR DISORDER
     Route: 048
     Dates: start: 19990101, end: 20040101
  6. RISPERDAL [Suspect]
     Indication: SCHIZOPHRENIA
     Route: 048
     Dates: start: 19990101, end: 20040101
  7. RISPERDAL [Suspect]
     Dosage: 0.25 MG- 0.5 MG
     Dates: start: 20010730
  8. RISPERDAL [Suspect]
     Dosage: 0.25 MG- 0.5 MG
     Dates: start: 20010730
  9. RISPERDAL [Suspect]
     Dates: start: 20010701, end: 20050401
  10. RISPERDAL [Suspect]
     Dates: start: 20010701, end: 20050401
  11. ZOCOR [Concomitant]
     Route: 048
     Dates: start: 20001103
  12. AVANDIA [Concomitant]
     Route: 048
     Dates: start: 20001103
  13. GLUCOPHAGE [Concomitant]
     Dates: start: 20001103
  14. DEPAKOTE [Concomitant]
     Dates: start: 20001103
  15. CELEBREX [Concomitant]
     Dosage: 100 MG - 200 MG
     Dates: start: 20001103
  16. ABILIFY [Concomitant]
     Dates: start: 20040101, end: 20060101
  17. ABILIFY [Concomitant]
     Dosage: 15 MG - 20 MG
     Dates: start: 20041201
  18. FUROSEMIDE [Concomitant]
     Dates: start: 20041201
  19. TEMAZEPAM [Concomitant]
  20. TEMAZEPAM [Concomitant]
     Dates: start: 20041201
  21. BENZTROPINE MESYLATE [Concomitant]
     Dosage: 0.5 MG-2 MG
     Dates: start: 20011016
  22. LORAZEPAM [Concomitant]
     Dates: start: 20010821
  23. PRINIVIL [Concomitant]
     Route: 048
     Dates: start: 20001103
  24. HALDOL [Concomitant]
     Dosage: 2-5 MG
     Dates: start: 20060301, end: 20060401
  25. TRIHEXYPHEN [Concomitant]

REACTIONS (6)
  - DEATH [None]
  - DIABETES MELLITUS [None]
  - HYPERGLYCAEMIA [None]
  - NEUROPATHY PERIPHERAL [None]
  - PANCYTOPENIA [None]
  - TYPE 2 DIABETES MELLITUS [None]
